FAERS Safety Report 10404299 (Version 1)
Quarter: 2014Q1

REPORT INFORMATION
  Report Type: Spontaneous
  Country: US (occurrence: None)
  Receive Date: 20140214
  Receipt Date: 20140214
  Transmission Date: 20141002
  Serious: No
  Sender: FDA-Public Use
  Company Number: A-NJ2014-93750

PATIENT
  Age: 60 Year
  Sex: Female

DRUGS (13)
  1. OPSUMIT [Suspect]
     Indication: PULMONARY HYPERTENSION
     Route: 048
     Dates: start: 201312
  2. SINGULAIR (MONTELUKAST SODIUM) TABLET [Concomitant]
  3. ZOCOR (SIMVASTATIN) [Concomitant]
  4. NEXIUM (ESOMEPRAZOLE SODIUM) [Concomitant]
  5. SYNTHROID (LEVOTHYROXINE SODIUM) [Concomitant]
  6. CLARITIN (LORATADINE) [Concomitant]
  7. ALLOPURINOL [Concomitant]
  8. CELEXA (CITALOPRAM HYDROBROMIDE) [Concomitant]
  9. PATANASE (OLOPATADINE HYDROCHLORIDE) [Concomitant]
  10. HYZAAR (HYDROCHLOROTHIAZIDE, LOSARTAN POTASSIUM) [Concomitant]
  11. ASA (ACETYLSALICYLIC ACID) [Concomitant]
  12. DOXERCALCIFEROL [Concomitant]
  13. OXYGEN [Concomitant]

REACTIONS (3)
  - Myalgia [None]
  - Drug intolerance [None]
  - Influenza like illness [None]
